FAERS Safety Report 23402518 (Version 1)
Quarter: 2024Q1

REPORT INFORMATION
  Report Type: Spontaneous
  Country: CN (occurrence: CN)
  Receive Date: 20240115
  Receipt Date: 20240115
  Transmission Date: 20240410
  Serious: Yes (Hospitalization)
  Sender: FDA-Public Use
  Company Number: CN-BRISTOL-MYERS SQUIBB COMPANY-2024-007113

PATIENT
  Age: 63 Year
  Sex: Female
  Weight: 41.0 kg

DRUGS (9)
  1. OPDIVO [Suspect]
     Active Substance: NIVOLUMAB
     Indication: Gastric cancer
     Route: 041
     Dates: start: 20231216, end: 20231216
  2. LEUCOVORIN CALCIUM [Suspect]
     Active Substance: LEUCOVORIN CALCIUM
     Indication: Gastric cancer
     Dosage: DOSES RECEIVED: 1 NUMBER OF DAYS USING THE DRUG: 1
     Route: 041
     Dates: start: 20231216, end: 20231216
  3. OXALIPLATIN [Suspect]
     Active Substance: OXALIPLATIN
     Indication: Gastric cancer
     Dosage: DOSES RECEIVED: 1 NUMBER OF DAYS USING THE DRUG: 1
     Route: 041
     Dates: start: 20231216, end: 20231216
  4. FLUOROURACIL [Suspect]
     Active Substance: FLUOROURACIL
     Indication: Gastric cancer
     Dosage: DOSES RECEIVED: 1 NUMBER OF DAYS USING THE DRUG: 1
     Route: 041
     Dates: start: 20231216, end: 20231216
  5. FLUOROURACIL [Suspect]
     Active Substance: FLUOROURACIL
     Dosage: DOSES RECEIVED: 1 NUMBER OF DAYS USING THE DRUG: 1
     Route: 041
     Dates: start: 20231216, end: 20231216
  6. SODIUM CHLORIDE [Concomitant]
     Active Substance: SODIUM CHLORIDE
     Indication: Product used for unknown indication
     Dosage: DOSES RECEIVED: 1 NUMBER OF DAYS USING THE DRUG: 1
     Route: 041
     Dates: start: 20231216, end: 20231216
  7. SODIUM CHLORIDE [Concomitant]
     Active Substance: SODIUM CHLORIDE
     Dosage: DOSES RECEIVED: 1 NUMBER OF DAYS USING THE DRUG: 1
     Route: 041
     Dates: start: 20231216, end: 20231216
  8. DEXTROSE [Concomitant]
     Active Substance: DEXTROSE\DEXTROSE MONOHYDRATE
     Indication: Product used for unknown indication
     Dosage: DOSES RECEIVED: 1 NUMBER OF DAYS USING THE DRUG: 1
     Route: 041
     Dates: start: 20231216, end: 20231216
  9. DEXTROSE [Concomitant]
     Active Substance: DEXTROSE\DEXTROSE MONOHYDRATE
     Dosage: DOSES RECEIVED: 1 NUMBER OF DAYS USING THE DRUG: 1
     Route: 041
     Dates: start: 20231216, end: 20231216

REACTIONS (1)
  - Myelosuppression [Recovering/Resolving]

NARRATIVE: CASE EVENT DATE: 20240104
